FAERS Safety Report 8270017-8 (Version None)
Quarter: 2012Q2

REPORT INFORMATION
  Report Type: 
  Country: None (occurrence: None)
  Receive Date: 20120410
  Receipt Date: 20120405
  Transmission Date: 20120825
  Serious: No
  Sender: FDA-Public Use
  Company Number: US-B.I. PHARMACEUTICALS,INC./RIDGEFIELD-2012-BP-06552BP

PATIENT
  Age: 64 Year
  Sex: Male

DRUGS (2)
  1. TRADJENTA [Suspect]
  2. TRADJENTA [Suspect]
     Dosage: 5 MG

REACTIONS (1)
  - EPISTAXIS [None]
